FAERS Safety Report 4680173-6 (Version None)
Quarter: 2005Q2

REPORT INFORMATION
  Report Type: 
  Country: None (occurrence: None)
  Receive Date: 20050525
  Receipt Date: 20050304
  Transmission Date: 20051028
  Serious: No
  Sender: FDA-Public Use
  Company Number: SU-2005-003284

PATIENT
  Sex: Female
  Weight: 113.3993 kg

DRUGS (3)
  1. BENICAR [Suspect]
     Indication: HYPERTENSION
     Dosage: 20 MG QD PO
     Route: 048
     Dates: start: 20041216, end: 20050106
  2. CARDIZEM SR [Suspect]
     Dosage: 250 MG QD PO
     Route: 048
     Dates: start: 20050106
  3. NORVASC [Concomitant]

REACTIONS (1)
  - BACK PAIN [None]
